FAERS Safety Report 7718984-2 (Version None)
Quarter: 2011Q3

REPORT INFORMATION
  Report Type: 
  Country: None (occurrence: None)
  Receive Date: 20110830
  Receipt Date: 20110823
  Transmission Date: 20111222
  Serious: Yes (Other)
  Sender: FDA-Public Use
  Company Number: US-GLAXOSMITHKLINE-A0941996A

PATIENT
  Age: 66 Year
  Sex: Female

DRUGS (8)
  1. OXYBUTYNIN [Concomitant]
  2. AMLODIPINE [Concomitant]
  3. RANITIDINE [Concomitant]
  4. TENORMIN [Concomitant]
  5. ADVAIR DISKUS 100/50 [Suspect]
     Indication: CHRONIC OBSTRUCTIVE PULMONARY DISEASE
     Dosage: 1PUFF TWICE PER DAY
     Route: 055
     Dates: start: 20070101
  6. VENTOLIN HFA [Concomitant]
  7. ASPIRIN [Concomitant]
  8. SIMAVASTATIN [Concomitant]

REACTIONS (10)
  - CATARACT [None]
  - COUGH [None]
  - HEADACHE [None]
  - EYE DISCHARGE [None]
  - DACRYOCANALICULITIS [None]
  - UPPER RESPIRATORY TRACT INFECTION [None]
  - DYSPHONIA [None]
  - OCULAR HYPERAEMIA [None]
  - BRONCHITIS [None]
  - CANDIDIASIS [None]
